FAERS Safety Report 9989463 (Version 1)
Quarter: 2014Q1

REPORT INFORMATION
  Report Type: Spontaneous
  Country: US (occurrence: US)
  Receive Date: 20140310
  Receipt Date: 20140310
  Transmission Date: 20141002
  Serious: Yes (Hospitalization)
  Sender: FDA-Public Use
  Company Number: US-ABBVIE-13P-163-1129024-00

PATIENT
  Age: 44 Year
  Sex: Male
  Weight: 76.6 kg

DRUGS (1)
  1. HUMIRA [Suspect]
     Indication: PSORIASIS
     Dates: start: 2011, end: 201306

REACTIONS (2)
  - Pneumonia cryptococcal [Not Recovered/Not Resolved]
  - Chest pain [Unknown]
